FAERS Safety Report 9726204 (Version 3)
Quarter: 2015Q1

REPORT INFORMATION
  Report Type: Spontaneous
  Country: US (occurrence: US)
  Receive Date: 20131203
  Receipt Date: 20150317
  Transmission Date: 20150721
  Serious: Yes (Hospitalization, Other)
  Sender: FDA-Public Use
  Company Number: US-BAYER-2013-144923

PATIENT
  Age: 34 Year
  Sex: Female
  Weight: 65.76 kg

DRUGS (1)
  1. MIRENA [Suspect]
     Active Substance: LEVONORGESTREL
     Indication: CONTRACEPTION
     Dosage: 20 MCG/24HR, CONT
     Route: 015
     Dates: start: 201011, end: 20130131

REACTIONS (9)
  - Uterine perforation [None]
  - Drug ineffective [None]
  - Anxiety [None]
  - Pain [None]
  - Ectopic pregnancy with contraceptive device [None]
  - Depression [None]
  - Stress [None]
  - Gastrointestinal injury [None]
  - Injury [None]

NARRATIVE: CASE EVENT DATE: 20130120
